FAERS Safety Report 8486901-6 (Version None)
Quarter: 2012Q3

REPORT INFORMATION
  Report Type: 
  Country: None (occurrence: None)
  Receive Date: 20120704
  Receipt Date: 20120627
  Transmission Date: 20120928
  Serious: Yes (Other)
  Sender: FDA-Public Use
  Company Number: PH-AMGEN-PHLCT2012034825

PATIENT
  Age: 56 Year
  Sex: Female
  Weight: 64.6 kg

DRUGS (2)
  1. DENOSUMAB [Suspect]
     Indication: BREAST CANCER
     Dosage: 120 MG, UNK
     Route: 058
     Dates: start: 20110824
  2. CALVIT [Concomitant]
     Dosage: UNK
     Route: 048
     Dates: start: 20110825

REACTIONS (1)
  - THROMBOCYTOPENIA [None]
